FAERS Safety Report 5484024-1 (Version None)
Quarter: 2007Q4

REPORT INFORMATION
  Report Type: 
  Country: None (occurrence: None)
  Receive Date: 20071009
  Receipt Date: 20071009
  Transmission Date: 20080405
  Serious: Yes (Hospitalization)
  Sender: FDA-Public Use
  Company Number: None

PATIENT
  Sex: Male
  Weight: 98.6 kg

DRUGS (23)
  1. SORAFENIB [Suspect]
     Indication: GLIOBLASTOMA
     Dosage: 400 MG DAYS 1-28 PO BID
     Route: 048
     Dates: start: 20071003
  2. SORAFENIB [Suspect]
     Indication: GLIOBLASTOMA
     Dosage: 400 MG DAYS 1-28 PO BID
     Route: 048
     Dates: start: 20071004
  3. SORAFENIB [Suspect]
     Indication: GLIOBLASTOMA
     Dosage: 400 MG DAYS 1-28 PO BID
     Route: 048
     Dates: start: 20071005
  4. TEMOZOLOMIDE [Suspect]
     Indication: GLIOBLASTOMA
     Dosage: 50 MG/M2 DAYS 1-28 PO DAILY
     Route: 048
     Dates: start: 20071003
  5. TEMOZOLOMIDE [Suspect]
     Indication: GLIOBLASTOMA
     Dosage: 50 MG/M2 DAYS 1-28 PO DAILY
     Route: 048
     Dates: start: 20071004
  6. PROTONIX [Concomitant]
  7. DEXAMETHASONE [Concomitant]
  8. COSOPT [Concomitant]
  9. LORAZEPAM [Concomitant]
  10. AMBIEN [Concomitant]
  11. CYCLOBENZAPRINE HCL [Concomitant]
  12. LOVENOX [Concomitant]
  13. FLUOXETINE [Concomitant]
  14. KEPPRA [Concomitant]
  15. STOOL SOFTENER [Concomitant]
  16. IMODIUM [Concomitant]
  17. RAINBOW LIGHT MULTIVITAMIN [Concomitant]
  18. SUPER OMEGA FISH OIL [Concomitant]
  19. ANDROGEL [Concomitant]
  20. FLUCONAZOLE [Concomitant]
  21. MAALOX [Concomitant]
  22. POTASSIUM MAGNESIUM ASPARTATE [Concomitant]
  23. BEANO [Concomitant]

REACTIONS (3)
  - GLIOBLASTOMA MULTIFORME [None]
  - MALIGNANT NEOPLASM PROGRESSION [None]
  - PANCREATITIS ACUTE [None]
